FAERS Safety Report 5633455-5 (Version None)
Quarter: 2008Q1

REPORT INFORMATION
  Report Type: 
  Country: None (occurrence: None)
  Receive Date: 20080221
  Receipt Date: 20080213
  Transmission Date: 20080703
  Serious: Yes (Hospitalization)
  Sender: FDA-Public Use
  Company Number: US-ELI_LILLY_AND_COMPANY-US200712002814

PATIENT
  Age: 55 Year
  Sex: Female

DRUGS (5)
  1. CYMBALTA [Suspect]
  2. METHADONE HCL [Concomitant]
  3. NORCO [Concomitant]
  4. PRILOSEC [Concomitant]
  5. LISINOPRIL [Concomitant]

REACTIONS (1)
  - BLOOD POTASSIUM DECREASED [None]
